FAERS Safety Report 21478286 (Version 1)
Quarter: 2022Q4

REPORT INFORMATION
  Report Type: Spontaneous
  Country: US (occurrence: None)
  Receive Date: 20221018
  Receipt Date: 20221018
  Transmission Date: 20230113
  Serious: No
  Sender: FDA-Public Use
  Company Number: None

PATIENT
  Age: 48 Year
  Sex: Female
  Weight: 109.35 kg

DRUGS (2)
  1. DUPIXENT [Suspect]
     Active Substance: DUPILUMAB
     Indication: Asthma
     Dosage: FREQUENCY : EVERY OTHER WEEK;?
     Route: 058
     Dates: start: 20220623, end: 20220930
  2. DUPIXENT [Suspect]
     Active Substance: DUPILUMAB
     Indication: Asthma
     Dosage: FREQUENCY : EVERY OTHER WEEK;?
     Route: 058
     Dates: start: 20220623, end: 20220930

REACTIONS (14)
  - Contusion [None]
  - Chest pain [None]
  - Diarrhoea [None]
  - Nasal congestion [None]
  - Infection [None]
  - Lung disorder [None]
  - Musculoskeletal chest pain [None]
  - Dyspnoea [None]
  - Blood pressure fluctuation [None]
  - Vomiting [None]
  - Wrong technique in product usage process [None]
  - Bronchitis [None]
  - Viral infection [None]
  - Paraesthesia [None]

NARRATIVE: CASE EVENT DATE: 20220930
